FAERS Safety Report 9028463 (Version 1)
Quarter: 2013Q1

REPORT INFORMATION
  Report Type: Spontaneous
  Country: US (occurrence: US)
  Receive Date: 20130124
  Receipt Date: 20130124
  Transmission Date: 20140127
  Serious: No
  Sender: FDA-Public Use
  Company Number: US-JNJFOC-20130106820

PATIENT
  Sex: Female
  Weight: 56.7 kg

DRUGS (6)
  1. DURAGESIC [Suspect]
     Indication: BACK PAIN
     Route: 062
  2. DURAGESIC [Suspect]
     Indication: BACK PAIN
     Route: 062
  3. OXYCONTIN [Concomitant]
     Indication: BREAKTHROUGH PAIN
     Route: 048
  4. MUSCLE RELAXANTS [Concomitant]
     Indication: MUSCLE RELAXANT THERAPY
     Route: 048
  5. PERCOCET [Concomitant]
     Indication: BREAKTHROUGH PAIN
     Route: 048
  6. UNSPECIFIED BIRTH CONTROL [Concomitant]
     Indication: CONTRACEPTION
     Route: 065

REACTIONS (5)
  - Insomnia [Not Recovered/Not Resolved]
  - Drug ineffective [Not Recovered/Not Resolved]
  - Product quality issue [Not Recovered/Not Resolved]
  - Drug dose omission [Not Recovered/Not Resolved]
  - Product quality issue [Unknown]
